FAERS Safety Report 15920155 (Version 4)
Quarter: 2019Q1

REPORT INFORMATION
  Report Type: Spontaneous
  Country: FR (occurrence: FR)
  Receive Date: 20190205
  Receipt Date: 20190327
  Transmission Date: 20190417
  Serious: Yes (Other)
  Sender: FDA-Public Use
  Company Number: FR-EISAI MEDICAL RESEARCH-EC-2019-051419

PATIENT
  Age: 10 Year
  Sex: Female
  Weight: 31 kg

DRUGS (4)
  1. FYCOMPA [Suspect]
     Active Substance: PERAMPANEL
     Route: 048
     Dates: start: 201811, end: 201811
  2. MICROPAKINE [Concomitant]
     Active Substance: VALPROATE SODIUM
     Indication: PRODUCT USED FOR UNKNOWN INDICATION
     Route: 048
     Dates: start: 201111
  3. FYCOMPA [Suspect]
     Active Substance: PERAMPANEL
     Indication: PARTIAL SEIZURES
     Route: 048
     Dates: start: 201809, end: 201811
  4. LAMICTAL [Concomitant]
     Active Substance: LAMOTRIGINE
     Indication: PRODUCT USED FOR UNKNOWN INDICATION
     Route: 048
     Dates: start: 2013

REACTIONS (4)
  - Aggression [Recovered/Resolved]
  - Abnormal behaviour [Recovered/Resolved]
  - Homicidal ideation [Recovered/Resolved]
  - Product administered to patient of inappropriate age [Recovered/Resolved]

NARRATIVE: CASE EVENT DATE: 201811
